FAERS Safety Report 23465802 (Version 1)
Quarter: 2024Q1

REPORT INFORMATION
  Report Type: Spontaneous
  Country: GB (occurrence: GB)
  Receive Date: 20240201
  Receipt Date: 20240201
  Transmission Date: 20240410
  Serious: Yes (Other)
  Sender: FDA-Public Use
  Company Number: GB-AstraZeneca-2024A021249

PATIENT
  Sex: Male

DRUGS (5)
  1. HYDROCORTISONE SODIUM SUCCINATE [Suspect]
     Active Substance: HYDROCORTISONE SODIUM SUCCINATE
  2. BEVESPI AEROSPHERE [Suspect]
     Active Substance: FORMOTEROL FUMARATE\GLYCOPYRROLATE
     Indication: Asthma
     Route: 055
  3. BEVESPI AEROSPHERE [Suspect]
     Active Substance: FORMOTEROL FUMARATE\GLYCOPYRROLATE
     Indication: Chronic obstructive pulmonary disease
  4. FLUTICASONE [Suspect]
     Active Substance: FLUTICASONE
  5. CICLESONIDE [Concomitant]
     Active Substance: CICLESONIDE

REACTIONS (6)
  - Adrenal suppression [Unknown]
  - Adrenal insufficiency [Unknown]
  - Chest discomfort [Unknown]
  - Catarrh [Unknown]
  - Feeling abnormal [Unknown]
  - Dyspnoea [Unknown]
